FAERS Safety Report 16788400 (Version 1)
Quarter: 2019Q3

REPORT INFORMATION
  Report Type: Report from Study
  Country: US (occurrence: US)
  Receive Date: 20190910
  Receipt Date: 20190910
  Transmission Date: 20191005
  Serious: No
  Sender: FDA-Public Use
  Company Number: PHEH2019US037222

PATIENT
  Sex: Female

DRUGS (1)
  1. GILENYA [Suspect]
     Active Substance: FINGOLIMOD HYDROCHLORIDE
     Indication: MULTIPLE SCLEROSIS
     Dosage: 0.5 MG, QD
     Route: 048
     Dates: start: 2017

REACTIONS (6)
  - Malaise [Unknown]
  - Herpes zoster [Unknown]
  - Nasopharyngitis [Unknown]
  - Sinusitis [Unknown]
  - Decreased immune responsiveness [Unknown]
  - Gastroenteritis viral [Unknown]
